FAERS Safety Report 6116918-8 (Version None)
Quarter: 2009Q1

REPORT INFORMATION
  Report Type: 
  Country: None (occurrence: None)
  Receive Date: 20090314
  Receipt Date: 20090205
  Transmission Date: 20090719
  Serious: No
  Sender: FDA-Public Use
  Company Number: PR-ABBOTT-09P-131-0502004-00

PATIENT
  Sex: Female
  Weight: 61.29 kg

DRUGS (5)
  1. HUMIRA [Suspect]
     Indication: DRUG USE FOR UNKNOWN INDICATION
  2. PULMICORT-100 [Concomitant]
     Indication: ASTHMA
     Dosage: NEBULIZER
  3. ALBUTEROL [Concomitant]
     Indication: ASTHMA
     Dosage: NEBULIZER
  4. SINGULAIR [Concomitant]
     Indication: ASTHMA
     Route: 048
  5. CARTIA XT [Concomitant]
     Indication: HYPERTENSION
     Route: 048

REACTIONS (1)
  - ACCIDENTAL NEEDLE STICK [None]
